FAERS Safety Report 8080998-3 (Version None)
Quarter: 2012Q1

REPORT INFORMATION
  Report Type: 
  Country: None (occurrence: None)
  Receive Date: 20120130
  Receipt Date: 20120124
  Transmission Date: 20120608
  Serious: Yes (Other)
  Sender: FDA-Public Use
  Company Number: ZA-JNJFOC-20120108964

PATIENT
  Sex: Female
  Weight: 66 kg

DRUGS (3)
  1. NICORETTE [Suspect]
     Indication: SMOKING CESSATION THERAPY
     Dosage: USUALLY CHEWS 2-4 GUMS/DAY BUT OVER PAST WEEKS INCREASED TO MANY GUMS/DAY (UNSPECIFIED)
     Route: 048
     Dates: start: 20110101
  2. NICORETTE [Suspect]
     Route: 062
  3. NICORETTE [Suspect]
     Indication: SMOKING CESSATION THERAPY
     Dosage: END DATE JAN-2012 (EXACT DATE UNSPECIFIED)
     Route: 062
     Dates: start: 20110101, end: 20120101

REACTIONS (4)
  - ABDOMINAL DISCOMFORT [None]
  - INTENTIONAL DRUG MISUSE [None]
  - NICOTINE DEPENDENCE [None]
  - DRUG INEFFECTIVE [None]
